FAERS Safety Report 4677330-1 (Version None)
Quarter: 2005Q2

REPORT INFORMATION
  Report Type: 
  Country: None (occurrence: None)
  Receive Date: 20050531
  Receipt Date: 20050518
  Transmission Date: 20051028
  Serious: Yes (Other)
  Sender: FDA-Public Use
  Company Number: US-BRISTOL-MYERS SQUIBB COMPANY-12974622

PATIENT
  Age: 54 Year
  Sex: Female

DRUGS (2)
  1. CETUXIMAB [Suspect]
     Indication: NON-SMALL CELL LUNG CANCER
     Dosage: 1ST AND MOST RECENT CETUXIMAB INFUSION ADMINISTERED ON 17-MAY-2005 (DISCONTINUED).
     Route: 042
     Dates: start: 20050517, end: 20050517
  2. ACIPHEX [Concomitant]
     Dates: start: 20050503

REACTIONS (4)
  - FLUSHING [None]
  - HYPERSENSITIVITY [None]
  - OXYGEN SATURATION DECREASED [None]
  - SINUS TACHYCARDIA [None]
